FAERS Safety Report 17344256 (Version 1)
Quarter: 2020Q1

REPORT INFORMATION
  Report Type: Spontaneous
  Country: US (occurrence: US)
  Receive Date: 20200129
  Receipt Date: 20200129
  Transmission Date: 20200409
  Serious: No
  Sender: FDA-Public Use
  Company Number: US-ALLERGAN-1929034US

PATIENT
  Age: 36 Year
  Sex: Female
  Weight: 56.69 kg

DRUGS (18)
  1. MULTIVITAMINS [Concomitant]
     Active Substance: VITAMINS
     Dosage: UNK, QD
  2. DIAZEPAM. [Concomitant]
     Active Substance: DIAZEPAM
     Indication: MIGRAINE
     Dosage: UNK, PRN
  3. BOTOX [Suspect]
     Active Substance: ONABOTULINUMTOXINA
     Indication: OCCIPITAL NEURALGIA
     Dosage: 200 UNITS, SINGLE
     Dates: start: 20190514, end: 20190514
  4. VITAMIN E [Concomitant]
     Active Substance: .ALPHA.-TOCOPHEROL
     Dosage: UNK, QD
  5. VITAMIN B12 [Concomitant]
     Active Substance: CYANOCOBALAMIN
     Dosage: UNK, QD
  6. ONDANSETRON [Concomitant]
     Active Substance: ONDANSETRON
     Indication: NAUSEA
     Dosage: UNK, PRN
  7. OMEGA 3 EPA PLUS DHA [Concomitant]
     Dosage: UNK, QD
  8. VITAMIN B2 [Concomitant]
     Active Substance: RIBOFLAVIN
     Dosage: UNK, QD
  9. TRAMADOL. [Concomitant]
     Active Substance: TRAMADOL
     Indication: MIGRAINE
     Dosage: UNK, PRN
  10. LYSINE [Concomitant]
     Active Substance: LYSINE
     Dosage: UNK, QD
  11. SOMA [Concomitant]
     Active Substance: CARISOPRODOL
     Indication: MIGRAINE
     Dosage: UNK, PRN
  12. PROMETHAZINE [Concomitant]
     Active Substance: PROMETHAZINE HYDROCHLORIDE
     Indication: NAUSEA
     Dosage: UNK, PRN
  13. EPIPEN [Concomitant]
     Active Substance: EPINEPHRINE
     Dosage: UNK, PRN
  14. PROVENTIL [Concomitant]
     Active Substance: ALBUTEROL
     Indication: ASTHMA
     Dosage: UNK, PRN
     Route: 055
  15. FEXOFENADINE HCL [Concomitant]
     Active Substance: FEXOFENADINE HYDROCHLORIDE
     Indication: SEASONAL ALLERGY
     Dosage: 180 MG, QD
  16. CELEBREX [Concomitant]
     Active Substance: CELECOXIB
     Indication: MIGRAINE
     Dosage: UNK, PRN
  17. BOTOX [Suspect]
     Active Substance: ONABOTULINUMTOXINA
     Indication: MIGRAINE
  18. DHA [Concomitant]
     Active Substance: DIETARY SUPPLEMENT
     Dosage: UNK, QD

REACTIONS (4)
  - Neuralgia [Recovering/Resolving]
  - Alopecia [Not Recovered/Not Resolved]
  - Skin exfoliation [Not Recovered/Not Resolved]
  - Off label use [Unknown]

NARRATIVE: CASE EVENT DATE: 20190630
